FAERS Safety Report 11790454 (Version 1)
Quarter: 2015Q4

REPORT INFORMATION
  Report Type: Spontaneous
  Country: FR (occurrence: FR)
  Receive Date: 20151201
  Receipt Date: 20151201
  Transmission Date: 20160305
  Serious: Yes (Other)
  Sender: FDA-Public Use
  Company Number: FR-TEVA-614283ISR

PATIENT
  Age: 47 Year
  Sex: Female

DRUGS (2)
  1. RANITIDINE [Suspect]
     Active Substance: RANITIDINE\RANITIDINE HYDROCHLORIDE
     Route: 065
  2. ALEMTUZUMAB [Interacting]
     Active Substance: ALEMTUZUMAB
     Indication: MULTIPLE SCLEROSIS
     Route: 050

REACTIONS (2)
  - Drug interaction [Recovered/Resolved]
  - Sinus bradycardia [Recovered/Resolved]
